FAERS Safety Report 20151420 (Version 7)
Quarter: 2022Q3

REPORT INFORMATION
  Report Type: Report from Study
  Country: US (occurrence: US)
  Receive Date: 20211206
  Receipt Date: 20220915
  Transmission Date: 20221026
  Serious: Yes (Hospitalization, Other)
  Sender: FDA-Public Use
  Company Number: US-BIOVITRUM-2021US11555

PATIENT
  Age: 67 Year
  Sex: Male

DRUGS (3)
  1. KINERET [Suspect]
     Active Substance: ANAKINRA
     Indication: Gout
     Dates: start: 20211108
  2. KINERET [Suspect]
     Active Substance: ANAKINRA
     Dates: start: 20211109
  3. KINERET [Suspect]
     Active Substance: ANAKINRA
     Dates: start: 202111

REACTIONS (15)
  - Cellulitis [Recovered/Resolved]
  - Fall [Unknown]
  - Foot fracture [Unknown]
  - Head injury [Unknown]
  - Diabetes mellitus [Unknown]
  - Renal impairment [Unknown]
  - Dysphonia [Unknown]
  - Depression [Unknown]
  - Emotional disorder [Unknown]
  - Loss of personal independence in daily activities [Unknown]
  - Frustration tolerance decreased [Unknown]
  - Emotional disorder [Unknown]
  - Product dose omission issue [Unknown]
  - Drug ineffective [Unknown]
  - Off label use [Not Recovered/Not Resolved]

NARRATIVE: CASE EVENT DATE: 20211108
